FAERS Safety Report 23359956 (Version 2)
Quarter: 2024Q1

REPORT INFORMATION
  Report Type: Spontaneous
  Country: JP (occurrence: JP)
  Receive Date: 20240103
  Receipt Date: 20240213
  Transmission Date: 20240410
  Serious: Yes (Hospitalization, Other)
  Sender: FDA-Public Use
  Company Number: JP-MSD-M2023-27500

PATIENT
  Sex: Female
  Weight: 55 kg

DRUGS (3)
  1. KEYTRUDA [Suspect]
     Active Substance: PEMBROLIZUMAB
     Indication: Triple negative breast cancer
     Dosage: 200 MILLIGRAM, Q3W
     Route: 041
     Dates: start: 20221216, end: 202302
  2. PACLITAXEL [Concomitant]
     Active Substance: PACLITAXEL
     Indication: Triple negative breast cancer
     Dosage: 110 MILLIGRAM, QW
     Route: 041
     Dates: start: 20221216, end: 20230308
  3. CARBOPLATIN [Concomitant]
     Active Substance: CARBOPLATIN
     Indication: Triple negative breast cancer
     Dosage: 110 MILLIGRAM, QW
     Route: 041
     Dates: start: 20221216, end: 20230308

REACTIONS (5)
  - Inappropriate antidiuretic hormone secretion [Recovered/Resolved]
  - Headache [Recovered/Resolved]
  - Interstitial lung disease [Recovered/Resolved]
  - Adrenocorticotropic hormone deficiency [Unknown]
  - Nausea [Unknown]

NARRATIVE: CASE EVENT DATE: 20230101
